FAERS Safety Report 5313985-6 (Version None)
Quarter: 2007Q2

REPORT INFORMATION
  Report Type: 
  Country: None (occurrence: None)
  Receive Date: 20070501
  Receipt Date: 20070426
  Transmission Date: 20071010
  Serious: Yes (Hospitalization)
  Sender: FDA-Public Use
  Company Number: JP-BOEHRINGER INGELHEIM PHARMACEUTICALS, INC.-2006-BP-14004NB

PATIENT
  Sex: Female
  Weight: 42 kg

DRUGS (13)
  1. BI-SIFROL TABLETS [Suspect]
     Indication: PARKINSON'S DISEASE
     Route: 048
     Dates: start: 20060131
  2. MENESIT [Concomitant]
     Indication: PARKINSON'S DISEASE
     Route: 048
     Dates: start: 20060104
  3. RESLIN [Concomitant]
     Indication: DEPRESSION
     Route: 048
     Dates: start: 20051219
  4. NITRAZEPAM [Concomitant]
     Indication: INSOMNIA
     Route: 048
     Dates: start: 20051003
  5. TRIAZOLAM [Concomitant]
     Indication: INSOMNIA
     Route: 048
     Dates: start: 20050905
  6. DEPROMEL (FLUVOXAMINE MALEATE) [Concomitant]
     Indication: DEPRESSION
     Route: 048
     Dates: start: 20050905
  7. SPIRONOLACTONE [Concomitant]
     Indication: HEPATIC CIRRHOSIS
     Route: 048
     Dates: start: 20050825
  8. FUROSEMIDE [Concomitant]
     Indication: HEPATIC CIRRHOSIS
     Route: 048
     Dates: start: 20050802
  9. KANAMYCIN [Concomitant]
     Indication: HEPATIC CIRRHOSIS
     Route: 048
     Dates: start: 20051002
  10. LACTULOSE [Concomitant]
     Indication: HEPATIC CIRRHOSIS
     Route: 048
     Dates: start: 20051027
  11. INSULIN [Concomitant]
     Indication: DIABETES MELLITUS
     Route: 058
     Dates: start: 20051101
  12. TERFIS [Concomitant]
     Indication: OEDEMA PERIPHERAL
     Route: 065
     Dates: start: 20060516, end: 20060518
  13. LIVACT [Concomitant]
     Indication: OEDEMA PERIPHERAL
     Route: 065
     Dates: start: 20051222, end: 20060201

REACTIONS (2)
  - COMA HEPATIC [None]
  - CONSTIPATION [None]
